FAERS Safety Report 18009884 (Version 1)
Quarter: 2020Q3

REPORT INFORMATION
  Report Type: Spontaneous
  Country: US (occurrence: US)
  Receive Date: 20200710
  Receipt Date: 20200710
  Transmission Date: 20201103
  Serious: Yes (Hospitalization)
  Sender: FDA-Public Use
  Company Number: US-CELGENEUS-USA-20200701635

PATIENT
  Age: 25 Year
  Sex: Female
  Weight: 74.46 kg

DRUGS (7)
  1. THALOMID [Suspect]
     Active Substance: THALIDOMIDE
     Indication: IMPULSE-CONTROL DISORDER
     Dosage: 200 MILLIGRAM
     Route: 048
     Dates: start: 201309
  2. THALOMID [Suspect]
     Active Substance: THALIDOMIDE
     Dosage: 350 MILLIGRAM
     Route: 048
     Dates: start: 201812
  3. THALOMID [Suspect]
     Active Substance: THALIDOMIDE
     Indication: OFF LABEL USE
     Dosage: 150 MG ?300 MG
     Route: 048
     Dates: start: 201706
  4. THALOMID [Suspect]
     Active Substance: THALIDOMIDE
     Indication: INFLAMMATION
     Dosage: 300 MG ?100 MG
     Route: 048
     Dates: start: 201310
  5. THALOMID [Suspect]
     Active Substance: THALIDOMIDE
     Dosage: 300 MILLIGRAM
     Route: 048
     Dates: start: 201906
  6. THALOMID [Suspect]
     Active Substance: THALIDOMIDE
     Dosage: 300 MILLIGRAM
     Route: 048
     Dates: start: 20200222
  7. THALOMID [Suspect]
     Active Substance: THALIDOMIDE
     Dosage: 200 MILLIGRAM
     Route: 048
     Dates: start: 202007

REACTIONS (1)
  - Colitis [Recovered/Resolved]

NARRATIVE: CASE EVENT DATE: 20200611
